FAERS Safety Report 25586680 (Version 3)
Quarter: 2025Q4

REPORT INFORMATION
  Report Type: Spontaneous
  Country: JP (occurrence: JP)
  Receive Date: 20250721
  Receipt Date: 20251205
  Transmission Date: 20260117
  Serious: Yes (Hospitalization, Disabling)
  Sender: AMGEN
  Company Number: JP-KISSEI-TV20240264_P_1

PATIENT
  Age: 93 Year
  Sex: Female
  Weight: 56.8 kg

DRUGS (31)
  1. TAVNEOS [Suspect]
     Active Substance: AVACOPAN
     Indication: Microscopic polyangiitis
     Dosage: 30 MG, QD
     Route: 048
     Dates: start: 20231016, end: 20231030
  2. TAVNEOS [Suspect]
     Active Substance: AVACOPAN
     Dosage: 20,MG,BID
     Route: 048
     Dates: start: 20231031, end: 20240724
  3. TAVNEOS [Suspect]
     Active Substance: AVACOPAN
     Dosage: 10,MG,BID
     Route: 048
     Dates: start: 20240725
  4. PREDNISOLONE [Suspect]
     Active Substance: PREDNISOLONE
     Indication: Microscopic polyangiitis
     Dosage: 25,MG,QD
     Route: 048
     Dates: end: 20231031
  5. PREDNISOLONE [Suspect]
     Active Substance: PREDNISOLONE
     Dosage: 40,MG,QD
     Route: 048
     Dates: start: 2023, end: 20231114
  6. PREDNISOLONE [Suspect]
     Active Substance: PREDNISOLONE
     Dosage: 30,MG,QD
     Route: 048
     Dates: start: 2023, end: 20231205
  7. PREDNISOLONE [Suspect]
     Active Substance: PREDNISOLONE
     Dosage: 20,MG,QD
     Route: 048
     Dates: start: 2023, end: 20231219
  8. PREDNISOLONE [Suspect]
     Active Substance: PREDNISOLONE
     Dosage: 15,MG,QD
     Route: 048
     Dates: start: 2023, end: 20240103
  9. PREDNISOLONE [Suspect]
     Active Substance: PREDNISOLONE
     Dosage: 12.5,MG,QD
     Route: 048
     Dates: end: 20240121
  10. PREDNISOLONE [Suspect]
     Active Substance: PREDNISOLONE
     Dosage: 10,MG,QD
     Route: 048
     Dates: end: 20240207
  11. PREDNISOLONE [Suspect]
     Active Substance: PREDNISOLONE
     Dosage: 7.5,MG,QD
     Route: 048
     Dates: end: 20240221
  12. PREDNISOLONE [Suspect]
     Active Substance: PREDNISOLONE
     Dosage: 5,MG,QD
     Route: 048
     Dates: end: 20240320
  13. PREDNISOLONE [Suspect]
     Active Substance: PREDNISOLONE
     Dosage: 2.5,MG,QD
     Route: 048
     Dates: end: 20240626
  14. PREDNISOLONE [Suspect]
     Active Substance: PREDNISOLONE
     Dosage: 2 MG, QD
     Route: 048
     Dates: end: 20241002
  15. PREDNISOLONE [Suspect]
     Active Substance: PREDNISOLONE
     Dosage: 1.5 MG, QD
     Route: 048
  16. PREDNISOLONE [Suspect]
     Active Substance: PREDNISOLONE
     Dosage: 12.5,MG,QD
     Route: 048
     Dates: start: 2024, end: 20240121
  17. PREDNISOLONE [Suspect]
     Active Substance: PREDNISOLONE
     Dosage: 10,MG,QD
     Route: 048
     Dates: start: 2024, end: 20240207
  18. PREDNISOLONE [Suspect]
     Active Substance: PREDNISOLONE
     Dosage: 7.5,MG,QD
     Route: 048
     Dates: start: 2024, end: 20240221
  19. PREDNISOLONE [Suspect]
     Active Substance: PREDNISOLONE
     Dosage: 5,MG,QD
     Route: 048
     Dates: start: 2024, end: 20240320
  20. PREDNISOLONE [Suspect]
     Active Substance: PREDNISOLONE
     Dosage: 2.5,MG,QD
     Route: 048
     Dates: start: 2024, end: 20240626
  21. PREDNISOLONE [Suspect]
     Active Substance: PREDNISOLONE
     Dosage: 2 MG, QD
     Route: 048
     Dates: start: 2024, end: 20241002
  22. PREDNISOLONE [Suspect]
     Active Substance: PREDNISOLONE
     Dosage: 1.5 MG, QD
     Route: 048
     Dates: start: 2024
  23. RITUXIMAB [Suspect]
     Active Substance: RITUXIMAB
     Indication: Microscopic polyangiitis
     Dosage: UNK
     Route: 040
  24. RITUXIMAB [Suspect]
     Active Substance: RITUXIMAB
     Dosage: 580,MG,UNK
     Route: 040
     Dates: end: 20231020
  25. RITUXIMAB [Suspect]
     Active Substance: RITUXIMAB
     Dosage: 580,MG,UNK
     Route: 040
     Dates: end: 20231024
  26. LEVOFLOXACIN [Suspect]
     Active Substance: LEVOFLOXACIN
     Indication: Product used for unknown indication
     Dosage: UNK,UNK,UNK
     Route: 065
     Dates: start: 2023, end: 20231124
  27. FUROSEMIDE [Suspect]
     Active Substance: FUROSEMIDE
     Indication: Oedema peripheral
     Dosage: UNK,UNK,UNK
     Route: 048
     Dates: start: 2023, end: 20231130
  28. Flomox [Concomitant]
     Indication: Product used for unknown indication
     Dosage: UNK,UNK,UNK
     Route: 048
     Dates: start: 20231124
  29. SULFAMETHOXAZOLE\TRIMETHOPRIM [Concomitant]
     Active Substance: SULFAMETHOXAZOLE\TRIMETHOPRIM
     Indication: Antifungal prophylaxis
     Dosage: 240,MG,QD
     Route: 048
     Dates: end: 20231128
  30. SULFAMETHOXAZOLE\TRIMETHOPRIM [Concomitant]
     Active Substance: SULFAMETHOXAZOLE\TRIMETHOPRIM
     Indication: Antibiotic prophylaxis
  31. SULFAMETHOXAZOLE\TRIMETHOPRIM [Concomitant]
     Active Substance: SULFAMETHOXAZOLE\TRIMETHOPRIM
     Indication: Antifungal prophylaxis

REACTIONS (6)
  - Cystitis pseudomonal [Recovered/Resolved with Sequelae]
  - Urinary tract infection [Recovering/Resolving]
  - Bladder diverticulum [Unknown]
  - Intentional underdose [Unknown]
  - Intentional underdose [Unknown]
  - Intentional underdose [Unknown]

NARRATIVE: CASE EVENT DATE: 20231016
